FAERS Safety Report 5005212-4 (Version None)
Quarter: 2006Q2

REPORT INFORMATION
  Report Type: 
  Country: None (occurrence: None)
  Receive Date: 20060515
  Receipt Date: 20060505
  Transmission Date: 20061013
  Serious: Yes (Other)
  Sender: FDA-Public Use
  Company Number: 2006060697

PATIENT
  Age: 73 Year
  Sex: Female
  Weight: 64.8644 kg

DRUGS (5)
  1. LIPITOR [Suspect]
     Indication: BLOOD CHOLESTEROL INCREASED
     Dosage: 10 MG (10 MG, 1 IN 1 D) ORAL
     Route: 048
     Dates: start: 20040701
  2. OMEPRAZOLE [Suspect]
     Indication: ILL-DEFINED DISORDER
  3. TOPROL-XL [Concomitant]
  4. BENICAR [Concomitant]
  5. COUMADIN [Concomitant]

REACTIONS (5)
  - ABASIA [None]
  - ATRIAL FIBRILLATION [None]
  - BLOOD CHOLESTEROL INCREASED [None]
  - DYSPNOEA [None]
  - RASH [None]
